FAERS Safety Report 9512251 (Version 1)
Quarter: 2013Q3

REPORT INFORMATION
  Report Type: Spontaneous
  Country: US (occurrence: US)
  Receive Date: 20130910
  Receipt Date: 20130910
  Transmission Date: 20140515
  Serious: Yes (Death, Other)
  Sender: FDA-Public Use
  Company Number: PHEH2013US018792

PATIENT
  Sex: Male

DRUGS (3)
  1. AFINITOR [Suspect]
     Route: 048
  2. AFINITOR [Suspect]
     Dosage: UNK
  3. NEURONTIN [Concomitant]

REACTIONS (2)
  - Death [Fatal]
  - Hypercalcaemia [Unknown]
